FAERS Safety Report 6046323-4 (Version None)
Quarter: 2009Q1

REPORT INFORMATION
  Report Type: 
  Country: None (occurrence: None)
  Receive Date: 20090121
  Receipt Date: 20090121
  Transmission Date: 20090719
  Serious: No
  Sender: FDA-Public Use
  Company Number: None

PATIENT
  Age: 56 Year
  Sex: Male
  Weight: 104.3273 kg

DRUGS (1)
  1. BUSPIRONE HCL [Suspect]
     Indication: DEPRESSION
     Dosage: 15MG TWICE A DAY PO
     Route: 048
     Dates: start: 20081203, end: 20090112

REACTIONS (2)
  - PHOTOPHOBIA [None]
  - PHOTOSENSITIVITY REACTION [None]
